FAERS Safety Report 7414679-3 (Version None)
Quarter: 2011Q2

REPORT INFORMATION
  Report Type: 
  Country: None (occurrence: None)
  Receive Date: 20110406
  Receipt Date: 20110322
  Transmission Date: 20111010
  Serious: Yes (Hospitalization)
  Sender: FDA-Public Use
  Company Number: 2011MA002749

PATIENT
  Age: 41 Year
  Sex: Male

DRUGS (1)
  1. FEVERALL [Suspect]
     Dosage: 1X, PO
     Route: 048

REACTIONS (6)
  - BLOOD CREATINE PHOSPHOKINASE INCREASED [None]
  - CATATONIA [None]
  - ALANINE AMINOTRANSFERASE INCREASED [None]
  - OVERDOSE [None]
  - DRUG ABUSE [None]
  - ASPARTATE AMINOTRANSFERASE INCREASED [None]
